FAERS Safety Report 11366432 (Version 1)
Quarter: 2015Q3

REPORT INFORMATION
  Report Type: Spontaneous
  Country: US (occurrence: US)
  Receive Date: 20150811
  Receipt Date: 20150811
  Transmission Date: 20151125
  Serious: No
  Sender: FDA-Public Use
  Company Number: US-ELI_LILLY_AND_COMPANY-US201301010438

PATIENT
  Sex: Male

DRUGS (2)
  1. AXIRON [Suspect]
     Active Substance: TESTOSTERONE
     Indication: LACRIMATION DECREASED
     Dosage: 30 MG, UNK
     Dates: start: 20130107
  2. AXIRON [Suspect]
     Active Substance: TESTOSTERONE
     Dosage: 60 MG, UNK
     Dates: start: 20130121

REACTIONS (3)
  - Blood testosterone abnormal [Unknown]
  - Drug dose omission [Unknown]
  - Off label use [Unknown]
